FAERS Safety Report 8803997 (Version 1)
Quarter: 2012Q4

REPORT INFORMATION
  Report Type: 
  Country: US (occurrence: US)
  Receive Date: 20120924
  Receipt Date: 20120924
  Transmission Date: 20130627
  Serious: No
  Sender: FDA-Public Use
  Company Number: US-PFIZER INC-2012231582

PATIENT
  Sex: Female

DRUGS (6)
  1. DETROL [Suspect]
     Dosage: 1 DF, 1x/day (took it for 3 or 4 months)
     Dates: start: 2004
  2. DETROL [Suspect]
     Dosage: 1 DF, 2x/day
  3. DETROL [Suspect]
     Dosage: UNK
     Dates: start: 2012
  4. VESICARE [Suspect]
     Dosage: UNK
     Dates: start: 2012
  5. FOSAMAX [Suspect]
     Indication: BONE DISORDER
     Dosage: UNK
  6. ZETIA [Concomitant]
     Indication: BLOOD CHOLESTEROL ABNORMAL
     Dosage: UNK

REACTIONS (8)
  - Overdose [Unknown]
  - Flushing [Unknown]
  - Fatigue [Unknown]
  - Abdominal distension [Unknown]
  - Burning sensation [Unknown]
  - Rash [Unknown]
  - Oedema peripheral [Recovering/Resolving]
  - Dehydration [Unknown]
